FAERS Safety Report 9537471 (Version 1)
Quarter: 2013Q3

REPORT INFORMATION
  Report Type: Spontaneous
  Country: GB (occurrence: GB)
  Receive Date: 20130919
  Receipt Date: 20130919
  Transmission Date: 20140515
  Serious: Yes (Other)
  Sender: FDA-Public Use
  Company Number: GB-GLAXOSMITHKLINE-B0921620A

PATIENT
  Age: 20 Week
  Sex: 0

DRUGS (1)
  1. ONDANSETRON [Suspect]
     Dosage: 12MG PER DAY
     Route: 064
     Dates: start: 20130301, end: 20130518

REACTIONS (1)
  - Intestinal obstruction [Recovered/Resolved]
